FAERS Safety Report 6397405-9 (Version None)
Quarter: 2009Q4

REPORT INFORMATION
  Report Type: 
  Country: None (occurrence: None)
  Receive Date: 20091012
  Receipt Date: 20090930
  Transmission Date: 20100525
  Serious: Yes (Hospitalization, Other)
  Sender: FDA-Public Use
  Company Number: PHHY2009CL42147

PATIENT
  Sex: Male

DRUGS (7)
  1. TAREG D [Suspect]
     Indication: HYPERTENSION
     Dosage: 160/12.5 MG
     Dates: start: 20061101
  2. BETAPLEX [Concomitant]
  3. CLONAZEPAM [Concomitant]
  4. ASPIRIN [Concomitant]
  5. SERTRALINE HCL [Concomitant]
     Dosage: UNK
  6. GEMFIBROZIL [Concomitant]
  7. DORMONID [Concomitant]

REACTIONS (3)
  - LUNG NEOPLASM [None]
  - RENAL CANCER [None]
  - SURGERY [None]
